FAERS Safety Report 18556177 (Version 1)
Quarter: 2020Q4

REPORT INFORMATION
  Report Type: Spontaneous
  Country: PL (occurrence: PL)
  Receive Date: 20201128
  Receipt Date: 20201128
  Transmission Date: 20210114
  Serious: Yes (Hospitalization, Other)
  Sender: FDA-Public Use
  Company Number: PL-ABBVIE-20K-129-3669604-00

PATIENT
  Age: 76 Year
  Sex: Female

DRUGS (12)
  1. VENCLYXTO [Suspect]
     Active Substance: VENETOCLAX
     Route: 048
     Dates: start: 20200818
  2. VENCLYXTO [Suspect]
     Active Substance: VENETOCLAX
     Route: 048
     Dates: start: 20200804, end: 20200810
  3. VENCLYXTO [Suspect]
     Active Substance: VENETOCLAX
     Route: 048
     Dates: start: 20200701, end: 20200705
  4. VENCLYXTO [Suspect]
     Active Substance: VENETOCLAX
     Route: 048
     Dates: start: 20200710, end: 20200714
  5. VENCLYXTO [Suspect]
     Active Substance: VENETOCLAX
     Route: 048
     Dates: start: 20200615, end: 20200615
  6. VENCLYXTO [Suspect]
     Active Substance: VENETOCLAX
     Route: 048
     Dates: start: 20200602, end: 20200607
  7. VENCLYXTO [Suspect]
     Active Substance: VENETOCLAX
     Route: 048
     Dates: start: 20200608, end: 20200614
  8. VENCLYXTO [Suspect]
     Active Substance: VENETOCLAX
     Route: 048
     Dates: start: 20200724, end: 20200724
  9. VENCLYXTO [Suspect]
     Active Substance: VENETOCLAX
     Route: 048
     Dates: start: 20200811, end: 20200817
  10. VENCLYXTO [Suspect]
     Active Substance: VENETOCLAX
     Indication: CHRONIC LYMPHOCYTIC LEUKAEMIA
     Route: 048
     Dates: start: 20200601, end: 20200601
  11. VENCLYXTO [Suspect]
     Active Substance: VENETOCLAX
     Route: 048
     Dates: start: 20200625, end: 20200630
  12. VENCLYXTO [Suspect]
     Active Substance: VENETOCLAX
     Route: 048
     Dates: start: 20200717, end: 20200723

REACTIONS (12)
  - Altered state of consciousness [Recovered/Resolved]
  - Lung opacity [Recovered/Resolved]
  - Blood phosphorus increased [Recovered/Resolved]
  - Granulocytopenia [Recovered/Resolved]
  - Pyrexia [Recovered/Resolved]
  - Fungal disease carrier [Recovered/Resolved]
  - Pleural disorder [Recovered/Resolved]
  - Tumour lysis syndrome [Recovered/Resolved]
  - Pneumonia [Recovering/Resolving]
  - Blood potassium increased [Recovered/Resolved]
  - Granulocytopenia [Recovered/Resolved]
  - Aspergillus test positive [Recovered/Resolved]

NARRATIVE: CASE EVENT DATE: 2020
